FAERS Safety Report 6218091-4 (Version None)
Quarter: 2009Q2

REPORT INFORMATION
  Report Type: 
  Country: None (occurrence: None)
  Receive Date: 20090608
  Receipt Date: 20090527
  Transmission Date: 20091009
  Serious: Yes (Other)
  Sender: FDA-Public Use
  Company Number: PHEH2008US07357

PATIENT
  Sex: Female
  Weight: 69.388 kg

DRUGS (3)
  1. ZOMETA [Suspect]
     Dosage: UNK
     Dates: end: 20070726
  2. CHEMOTHERAPEUTICS NOS [Concomitant]
  3. FEMARA [Concomitant]
     Dosage: 2.5MG

REACTIONS (17)
  - ANXIETY [None]
  - DENTAL CARIES [None]
  - FISTULA DISCHARGE [None]
  - GENERAL PHYSICAL HEALTH DETERIORATION [None]
  - HAEMATURIA [None]
  - JOINT ARTHROPLASTY [None]
  - MASTECTOMY [None]
  - MICTURITION URGENCY [None]
  - OSTEONECROSIS [None]
  - PAIN [None]
  - PAIN IN JAW [None]
  - PARAESTHESIA ORAL [None]
  - SPINAL COMPRESSION FRACTURE [None]
  - SURGERY [None]
  - SWELLING [None]
  - TOOTH EXTRACTION [None]
  - VERTEBROPLASTY [None]
